FAERS Safety Report 9617713 (Version 6)
Quarter: 2014Q2

REPORT INFORMATION
  Report Type: Report from Study
  Country: DE (occurrence: DE)
  Receive Date: 20131011
  Receipt Date: 20140512
  Transmission Date: 20141212
  Serious: Yes (Hospitalization)
  Sender: FDA-Public Use
  Company Number: PHHO2013DE013207

PATIENT
  Sex: 0

DRUGS (4)
  1. SOM230 [Suspect]
     Indication: NEUROENDOCRINE TUMOUR
     Dosage: 60 MG,Q28D
     Route: 030
     Dates: start: 20130926, end: 20130926
  2. AFINITOR [Suspect]
     Indication: NEUROENDOCRINE TUMOUR
     Dosage: 10 MG, QD
     Route: 048
     Dates: start: 20130704, end: 20130826
  3. AFINITOR [Suspect]
     Dosage: 5 MG, QD
     Route: 048
     Dates: start: 20130827, end: 20130827
  4. AFINITOR [Suspect]
     Dosage: 5 UNK, UNK
     Route: 048
     Dates: start: 20130917

REACTIONS (1)
  - Hyperglycaemia [Recovered/Resolved with Sequelae]
